FAERS Safety Report 5492985-X (Version None)
Quarter: 2007Q4

REPORT INFORMATION
  Report Type: 
  Country: None (occurrence: None)
  Receive Date: 20071023
  Receipt Date: 20071015
  Transmission Date: 20080405
  Serious: Yes (Life-Threatening, Hospitalization)
  Sender: FDA-Public Use
  Company Number: CA-AMGEN-QUU247913

PATIENT
  Age: 51 Year
  Sex: Female
  Weight: 63.1 kg

DRUGS (4)
  1. NEULASTA [Suspect]
     Indication: CHEMOTHERAPY
     Route: 058
     Dates: start: 20070922
  2. EPIRUBICIN [Concomitant]
     Route: 065
     Dates: start: 20070831
  3. CYCLOPHOSPHAMIDE [Concomitant]
     Route: 065
     Dates: start: 20070831
  4. FLUOROURACIL [Concomitant]
     Route: 065
     Dates: start: 20070831

REACTIONS (8)
  - CONVULSION [None]
  - HYPOTENSION [None]
  - LIP SWELLING [None]
  - LOSS OF CONSCIOUSNESS [None]
  - PHARYNGEAL OEDEMA [None]
  - RASH MACULAR [None]
  - RASH PRURITIC [None]
  - SKIN BURNING SENSATION [None]
